FAERS Safety Report 20094953 (Version 1)
Quarter: 2021Q4

REPORT INFORMATION
  Report Type: Spontaneous
  Country: FR (occurrence: FR)
  Receive Date: 20211122
  Receipt Date: 20211122
  Transmission Date: 20220303
  Serious: Yes (Death)
  Sender: FDA-Public Use
  Company Number: None

PATIENT
  Age: 44 Year
  Sex: Male

DRUGS (2)
  1. RIFAXIMIN [Suspect]
     Active Substance: RIFAXIMIN
     Indication: Product used for unknown indication
     Route: 048
     Dates: start: 20180424, end: 20180502
  2. FLUCONAZOLE [Suspect]
     Active Substance: FLUCONAZOLE
     Indication: Fungaemia
     Route: 048
     Dates: start: 20180427, end: 20180502

REACTIONS (3)
  - Gamma-glutamyltransferase increased [Fatal]
  - Hepatic function abnormal [Fatal]
  - Overdose [Fatal]

NARRATIVE: CASE EVENT DATE: 20180501
